FAERS Safety Report 13801022 (Version 2)
Quarter: 2017Q3

REPORT INFORMATION
  Report Type: Spontaneous
  Country: GR (occurrence: GR)
  Receive Date: 20170727
  Receipt Date: 20170814
  Transmission Date: 20171127
  Serious: Yes (Other)
  Sender: FDA-Public Use
  Company Number: PHHY2017GR108099

PATIENT
  Age: 57 Year
  Sex: Female

DRUGS (2)
  1. COSENTYX [Suspect]
     Active Substance: SECUKINUMAB
     Dosage: 150 MG, QMO
     Route: 065
  2. COSENTYX [Suspect]
     Active Substance: SECUKINUMAB
     Indication: PSORIASIS
     Dosage: 300 MG, QMO
     Route: 065

REACTIONS (6)
  - Abdominal pain lower [Unknown]
  - Gastrointestinal pain [Not Recovered/Not Resolved]
  - Musculoskeletal chest pain [Recovering/Resolving]
  - Colitis ulcerative [Unknown]
  - Large intestinal ulcer [Not Recovered/Not Resolved]
  - Therapeutic response unexpected [Unknown]
